FAERS Safety Report 19860099 (Version 1)
Quarter: 2021Q3

REPORT INFORMATION
  Report Type: Spontaneous
  Country: CA (occurrence: CA)
  Receive Date: 20210920
  Receipt Date: 20210920
  Transmission Date: 20211014
  Serious: Yes (Death, Hospitalization)
  Sender: FDA-Public Use
  Company Number: CA-TEVA-2021-CA-1954809

PATIENT
  Age: 94 Year
  Sex: Female
  Weight: 53 kg

DRUGS (17)
  1. HYDROMORPHONE [Concomitant]
     Active Substance: HYDROMORPHONE
  2. VOLTAREN [Concomitant]
     Active Substance: DICLOFENAC SODIUM
  3. D?TABS [Concomitant]
     Active Substance: CHOLECALCIFEROL
  4. SYNTHROID [Concomitant]
     Active Substance: LEVOTHYROXINE SODIUM
  5. HALDOL [Concomitant]
     Active Substance: HALOPERIDOL
  6. LASIX [Concomitant]
     Active Substance: FUROSEMIDE
  7. TYLENOL [Concomitant]
     Active Substance: ACETAMINOPHEN
  8. AMOXICILLIN. [Suspect]
     Active Substance: AMOXICILLIN
     Dosage: 1000 MILLIGRAM DAILY;
     Route: 048
  9. DESYREL [Concomitant]
     Active Substance: TRAZODONE HYDROCHLORIDE
  10. KEFLEX [Concomitant]
     Active Substance: CEPHALEXIN
  11. LOPRESOR [Concomitant]
     Active Substance: METOPROLOL
  12. NORVASC [Concomitant]
     Active Substance: AMLODIPINE BESYLATE
  13. PANTOLOC [Concomitant]
     Active Substance: PANTOPRAZOLE SODIUM
  14. XGEVA [Concomitant]
     Active Substance: DENOSUMAB
  15. CAL?500 [Concomitant]
  16. CORDARONE [Concomitant]
     Active Substance: AMIODARONE HYDROCHLORIDE
  17. DILAUDID [Concomitant]
     Active Substance: HYDROMORPHONE HYDROCHLORIDE

REACTIONS (1)
  - Clostridium difficile colitis [Fatal]
